FAERS Safety Report 8398040-3 (Version None)
Quarter: 2012Q2

REPORT INFORMATION
  Report Type: 
  Country: None (occurrence: None)
  Receive Date: 20120531
  Receipt Date: 20120523
  Transmission Date: 20120825
  Serious: Yes (Other)
  Sender: FDA-Public Use
  Company Number: US-ASTELLAS-2012US004253

PATIENT
  Sex: Female

DRUGS (2)
  1. PROGRAF [Suspect]
     Indication: RENAL TRANSPLANT
     Dosage: 3 MG, BID
     Route: 048
     Dates: start: 20100314
  2. PROGRAF [Suspect]
     Dosage: 4 MG, BID
     Route: 048

REACTIONS (2)
  - KIDNEY TRANSPLANT REJECTION [None]
  - DRUG INEFFECTIVE [None]
